FAERS Safety Report 6100039-4 (Version None)
Quarter: 2009Q1

REPORT INFORMATION
  Report Type: 
  Country: None (occurrence: None)
  Receive Date: 20090303
  Receipt Date: 20090220
  Transmission Date: 20090719
  Serious: Yes (Hospitalization)
  Sender: FDA-Public Use
  Company Number: B0560733A

PATIENT
  Age: 78 Year
  Sex: Female

DRUGS (6)
  1. AVANDAMET [Suspect]
     Route: 048
     Dates: start: 20070101, end: 20081201
  2. FORTZAAR [Concomitant]
     Route: 065
  3. ATENOLOL [Concomitant]
     Route: 065
  4. KARDEGIC [Concomitant]
     Route: 065
  5. BRONCHODUAL [Concomitant]
     Route: 065
  6. DELURSAN [Concomitant]
     Route: 065

REACTIONS (5)
  - CARDIAC FAILURE [None]
  - DYSPNOEA AT REST [None]
  - LEFT VENTRICULAR HYPERTROPHY [None]
  - OEDEMA PERIPHERAL [None]
  - RALES [None]
